FAERS Safety Report 24815754 (Version 1)
Quarter: 2025Q1

REPORT INFORMATION
  Report Type: Spontaneous
  Country: US (occurrence: US)
  Receive Date: 20250107
  Receipt Date: 20250107
  Transmission Date: 20250409
  Serious: No
  Sender: PFIZER
  Company Number: US-PFIZER INC-202500001583

PATIENT
  Age: 70 Year
  Sex: Male

DRUGS (20)
  1. METHOTREXATE SODIUM [Suspect]
     Active Substance: METHOTREXATE SODIUM
  2. OTEZLA [Concomitant]
     Active Substance: APREMILAST
     Indication: Psoriasis
     Dosage: 30 MILLIGRAM, BID
     Route: 048
     Dates: start: 20221202, end: 20230417
  3. TERBINAFINA HCL [Concomitant]
  4. AMOXICILLIN\CLAVULANATE POTASSIUM [Concomitant]
     Active Substance: AMOXICILLIN\CLAVULANATE POTASSIUM
     Route: 048
  5. BENZONATATE [Concomitant]
     Active Substance: BENZONATATE
  6. GLIMEPIRIDE [Concomitant]
     Active Substance: GLIMEPIRIDE
     Route: 048
  7. HYDROXYZINE HYDROCHLORIDE [Concomitant]
     Active Substance: HYDROXYZINE HYDROCHLORIDE
     Route: 048
  8. METFORMIN HYDROCHLORIDE [Concomitant]
     Active Substance: METFORMIN HYDROCHLORIDE
     Route: 048
  9. PAROXETINE HYDROCHLORIDE [Concomitant]
     Active Substance: PAROXETINE HYDROCHLORIDE
     Route: 048
  10. PREGABALIN [Concomitant]
     Active Substance: PREGABALIN
     Route: 048
  11. QUINAPRIL [QUINAPRIL HYDROCHLORIDE] [Concomitant]
     Route: 048
  12. SIMVASTATIN [Concomitant]
     Active Substance: SIMVASTATIN
     Route: 048
  13. SOLIFENACIN [SOLIFENACIN SUCCINATE] [Concomitant]
     Route: 048
  14. TERBINAFINE HYDROCHLORIDE [Concomitant]
     Active Substance: TERBINAFINE HYDROCHLORIDE
     Route: 048
  15. TRAMADOL [Concomitant]
     Active Substance: TRAMADOL
     Route: 048
  16. SKYRIZI [Concomitant]
     Active Substance: RISANKIZUMAB-RZAA
  17. TALTZ [Concomitant]
     Active Substance: IXEKIZUMAB
  18. CIMZIA [Concomitant]
     Active Substance: CERTOLIZUMAB PEGOL
     Route: 058
  19. HUMIRA [Concomitant]
     Active Substance: ADALIMUMAB
     Route: 058
     Dates: start: 2023
  20. BIMZELX [BIMEKIZUMAB] [Concomitant]
     Route: 058

REACTIONS (1)
  - Treatment failure [Unknown]
